FAERS Safety Report 22144534 (Version 1)
Quarter: 2023Q1

REPORT INFORMATION
  Report Type: Spontaneous
  Country: JP (occurrence: JP)
  Receive Date: 20230328
  Receipt Date: 20230328
  Transmission Date: 20230417
  Serious: No
  Sender: FDA-Public Use
  Company Number: JP-ALKEM LABORATORIES LIMITED-JP-ALKEM-2022-14950

PATIENT
  Age: 70 Year
  Sex: Male

DRUGS (3)
  1. OXYCODONE HYDROCHLORIDE [Suspect]
     Active Substance: OXYCODONE HYDROCHLORIDE
     Indication: Cancer pain
     Dosage: 180 MILLIGRAM, PRE BLOCK (EQUIVALENT ORAL MORPHINE DOSE))
     Route: 048
  2. OXYCODONE HYDROCHLORIDE [Suspect]
     Active Substance: OXYCODONE HYDROCHLORIDE
     Dosage: 120 MILLIGRAM, POST BLOCK (EQUIVALENT ORAL MORPHINE DOSE)
     Route: 048
  3. OXYCODONE HYDROCHLORIDE [Suspect]
     Active Substance: OXYCODONE HYDROCHLORIDE
     Dosage: 60 MILLIGRAM, TAPERING DOSE (EQUIVALENT ORAL MORPHINE DOSE)
     Route: 048

REACTIONS (2)
  - Withdrawal syndrome [Unknown]
  - Nausea [Unknown]
